FAERS Safety Report 6803421-2 (Version None)
Quarter: 2010Q2

REPORT INFORMATION
  Report Type: 
  Country: None (occurrence: None)
  Receive Date: 20100628
  Receipt Date: 20100618
  Transmission Date: 20101027
  Serious: Yes (Hospitalization, Other)
  Sender: FDA-Public Use
  Company Number: JP-SANOFI-AVENTIS-2010SA036837

PATIENT
  Age: 55 Year
  Sex: Male

DRUGS (31)
  1. FLUDARABINE PHOSPHATE [Suspect]
     Indication: FOLLICLE CENTRE LYMPHOMA, FOLLICULAR GRADE I, II, III STAGE IV
     Route: 048
     Dates: start: 20090216, end: 20090218
  2. FLUDARABINE PHOSPHATE [Suspect]
     Route: 048
     Dates: start: 20090512, end: 20090514
  3. FLUDARABINE PHOSPHATE [Suspect]
     Route: 048
     Dates: start: 20090407, end: 20090409
  4. FLUDARABINE PHOSPHATE [Suspect]
     Route: 048
     Dates: start: 20090312, end: 20090314
  5. RITUXAN [Suspect]
     Indication: FOLLICLE CENTRE LYMPHOMA, FOLLICULAR GRADE I, II, III STAGE IV
     Route: 041
     Dates: start: 20090213, end: 20090213
  6. RITUXAN [Suspect]
     Route: 041
     Dates: start: 20090310, end: 20090310
  7. RITUXAN [Suspect]
     Route: 041
     Dates: start: 20090406, end: 20090406
  8. RITUXAN [Suspect]
     Route: 041
     Dates: start: 20090511, end: 20090511
  9. NOVANTRONE [Suspect]
     Indication: FOLLICLE CENTRE LYMPHOMA, FOLLICULAR GRADE I, II, III STAGE IV
     Route: 042
     Dates: start: 20090214, end: 20090214
  10. NOVANTRONE [Suspect]
     Route: 042
     Dates: start: 20090311, end: 20090311
  11. NOVANTRONE [Suspect]
     Route: 042
     Dates: start: 20090407, end: 20090407
  12. NOVANTRONE [Suspect]
     Route: 042
     Dates: start: 20090512, end: 20090512
  13. ENDOXAN [Suspect]
     Indication: FOLLICLE CENTRE LYMPHOMA, FOLLICULAR GRADE I, II, III STAGE IV
     Route: 042
     Dates: start: 20090214, end: 20090216
  14. ENDOXAN [Suspect]
     Route: 042
     Dates: start: 20090311, end: 20090311
  15. ENDOXAN [Suspect]
     Route: 042
     Dates: start: 20090407, end: 20090407
  16. ENDOXAN [Suspect]
     Route: 042
     Dates: start: 20090512, end: 20090512
  17. ENDOXAN [Suspect]
     Route: 048
     Dates: start: 20090312, end: 20090313
  18. ENDOXAN [Suspect]
     Route: 048
     Dates: start: 20090408, end: 20090409
  19. ENDOXAN [Suspect]
     Route: 048
     Dates: start: 20090513, end: 20090514
  20. ZOFRAN [Concomitant]
     Indication: PROPHYLAXIS OF NAUSEA AND VOMITING
     Route: 048
     Dates: start: 20090216, end: 20090218
  21. `VALTREX [Concomitant]
     Indication: HERPES ZOSTER
     Route: 048
     Dates: start: 20090211, end: 20090226
  22. `VALTREX [Concomitant]
     Route: 048
     Dates: start: 20090227, end: 20090305
  23. ALLOPURINOL [Concomitant]
     Indication: PROPHYLAXIS
     Route: 048
     Dates: start: 20090402, end: 20090406
  24. AMARYL [Concomitant]
     Indication: DIABETES MELLITUS
     Route: 048
     Dates: start: 20090402, end: 20090608
  25. MIGLITOL [Concomitant]
     Indication: DIABETES MELLITUS
     Route: 048
     Dates: start: 20090402, end: 20090608
  26. KYTRIL [Concomitant]
     Indication: PROPHYLAXIS OF NAUSEA AND VOMITING
     Route: 041
     Dates: start: 20090312, end: 20090312
  27. KYTRIL [Concomitant]
     Route: 041
     Dates: start: 20090407, end: 20090407
  28. KYTRIL [Concomitant]
     Route: 041
     Dates: start: 20090512, end: 20090512
  29. PIRARUBICIN [Concomitant]
     Indication: FOLLICLE CENTRE LYMPHOMA, FOLLICULAR GRADE I, II, III STAGE IV
  30. VINCRISTINE SULFATE [Concomitant]
     Indication: FOLLICLE CENTRE LYMPHOMA, FOLLICULAR GRADE I, II, III STAGE IV
     Route: 065
  31. PREDNISOLONE [Concomitant]
     Indication: FOLLICLE CENTRE LYMPHOMA, FOLLICULAR GRADE I, II, III STAGE IV
     Route: 065

REACTIONS (4)
  - ANAL FISTULA [None]
  - LYMPHOCYTE COUNT DECREASED [None]
  - NEUTROPHIL COUNT DECREASED [None]
  - RASH [None]
